FAERS Safety Report 4349133-9 (Version None)
Quarter: 2004Q2

REPORT INFORMATION
  Report Type: 
  Country: None (occurrence: None)
  Receive Date: 20040427
  Receipt Date: 20040427
  Transmission Date: 20050107
  Serious: Yes (Hospitalization)
  Sender: FDA-Public Use
  Company Number: None

PATIENT
  Sex: Male

DRUGS (11)
  1. WARFARIN SODIUM [Suspect]
     Indication: ATRIAL FIBRILLATION
     Dosage: 5 MG DAILY ORAL
     Route: 048
  2. ALLOPURINOL TAB [Concomitant]
  3. CARVEDILOL [Concomitant]
  4. CLONIDINE HCL [Concomitant]
  5. DIGOXIN [Concomitant]
  6. FERROUS SULFATE TAB [Concomitant]
  7. FUROSEMIDE [Concomitant]
  8. LEVOTHYROXINE [Concomitant]
  9. LISINOPRIL [Concomitant]
  10. MINOXIDIL [Concomitant]
  11. SPIRONOLACTONE [Concomitant]

REACTIONS (1)
  - GASTROINTESTINAL HAEMORRHAGE [None]
